FAERS Safety Report 14557528 (Version 1)
Quarter: 2018Q1

REPORT INFORMATION
  Report Type: Spontaneous
  Country: US (occurrence: US)
  Receive Date: 20180221
  Receipt Date: 20180221
  Transmission Date: 20180509
  Serious: No
  Sender: FDA-Public Use
  Company Number: US-PFIZER INC-2018069206

PATIENT
  Age: 72 Year
  Sex: Female
  Weight: 71.67 kg

DRUGS (3)
  1. GABAPENTIN. [Suspect]
     Active Substance: GABAPENTIN
     Indication: INTRACRANIAL ANEURYSM
     Dosage: UNK UNK, 2X/DAY (100 MG TWO CAPSULES, TWICE DAILY; AT NIGHT BEFORE GOING TO BED AND IN THE MORNING)
     Route: 048
  2. GABAPENTIN. [Suspect]
     Active Substance: GABAPENTIN
     Indication: SYSTEMIC LUPUS ERYTHEMATOSUS
  3. GABAPENTIN. [Suspect]
     Active Substance: GABAPENTIN
     Indication: TRIGEMINAL NEURALGIA

REACTIONS (9)
  - Visual impairment [Unknown]
  - Feeling jittery [Unknown]
  - Anger [Unknown]
  - Thinking abnormal [Unknown]
  - Formication [Unknown]
  - Product use in unapproved indication [Unknown]
  - Urticaria [Recovered/Resolved]
  - Dry eye [Unknown]
  - Feeling abnormal [Unknown]
